FAERS Safety Report 13250532 (Version 2)
Quarter: 2017Q1

REPORT INFORMATION
  Report Type: Report from Study
  Country: US (occurrence: US)
  Receive Date: 20170219
  Receipt Date: 20170222
  Transmission Date: 20170428
  Serious: Yes (Hospitalization)
  Sender: FDA-Public Use
  Company Number: US-BIOGEN-2017BI00357526

PATIENT
  Age: 44 Year
  Sex: Female
  Weight: 63.56 kg

DRUGS (3)
  1. TECFIDERA [Suspect]
     Active Substance: DIMETHYL FUMARATE
     Dosage: STARTING DOSE
     Route: 048
     Dates: start: 20170211
  2. TECFIDERA [Suspect]
     Active Substance: DIMETHYL FUMARATE
     Indication: MULTIPLE SCLEROSIS
     Route: 065
     Dates: start: 20130816
  3. TECFIDERA [Suspect]
     Active Substance: DIMETHYL FUMARATE
     Dosage: MAINTENANCE DOSE
     Route: 048
     Dates: start: 20150814, end: 201609

REACTIONS (4)
  - Mental impairment [Unknown]
  - Abdominal abscess [Recovered/Resolved]
  - Cyst [Unknown]
  - Disturbance in attention [Unknown]

NARRATIVE: CASE EVENT DATE: 201609
